FAERS Safety Report 10610870 (Version 1)
Quarter: 2014Q4

REPORT INFORMATION
  Report Type: Spontaneous
  Country: US (occurrence: US)
  Receive Date: 20141126
  Receipt Date: 20141126
  Transmission Date: 20150529
  Serious: No
  Sender: FDA-Public Use
  Company Number: US-MALLINCKRODT-T201402978

PATIENT
  Age: 29 Year
  Sex: Male

DRUGS (2)
  1. GABLOFEN [Suspect]
     Active Substance: BACLOFEN
     Indication: MUSCLE SPASTICITY
     Dosage: 689 MCG/DAY
     Route: 037
     Dates: start: 20140415
  2. GABLOFEN [Suspect]
     Active Substance: BACLOFEN
     Dosage: 710.7 MCG/DAY
     Route: 037
     Dates: start: 20140616

REACTIONS (2)
  - Muscle spasticity [Recovering/Resolving]
  - Intervertebral disc protrusion [Unknown]

NARRATIVE: CASE EVENT DATE: 201405
